FAERS Safety Report 11197230 (Version 2)
Quarter: 2016Q2

REPORT INFORMATION
  Report Type: Spontaneous
  Country: US (occurrence: US)
  Receive Date: 20150617
  Receipt Date: 20160621
  Transmission Date: 20160815
  Serious: No
  Sender: FDA-Public Use
  Company Number: US-SA-2014SA168062

PATIENT
  Age: 3 Year
  Sex: Male
  Weight: 15.53 kg

DRUGS (1)
  1. CEREZYME [Suspect]
     Active Substance: IMIGLUCERASE
     Dosage: DOSE:29 UNIT(S)/KILOGRAM BODYWEIGHT
     Route: 064

REACTIONS (2)
  - Speech disorder developmental [Not Recovered/Not Resolved]
  - Maternal exposure during pregnancy [Unknown]

NARRATIVE: CASE EVENT DATE: 20140317
